FAERS Safety Report 8838919 (Version 1)
Quarter: 2012Q4

REPORT INFORMATION
  Report Type: Spontaneous
  Country: US (occurrence: None)
  Receive Date: 20121011
  Receipt Date: 20121011
  Transmission Date: 20130627
  Serious: Yes (Other)
  Sender: FDA-Public Use
  Company Number: None

PATIENT
  Age: 54 Year
  Sex: Female

DRUGS (2)
  1. FORTEO [Suspect]
     Indication: BONE DISORDER
     Dosage: 20mcg QD SQ
     Route: 058
     Dates: start: 201204, end: 20120911
  2. FORTEO [Suspect]
     Indication: CARTILAGE DISORDER
     Dosage: 20mcg QD SQ
     Route: 058
     Dates: start: 201204, end: 20120911

REACTIONS (2)
  - Bone pain [None]
  - Hyperhidrosis [None]
